FAERS Safety Report 5450935-6 (Version None)
Quarter: 2007Q3

REPORT INFORMATION
  Report Type: 
  Country: None (occurrence: None)
  Receive Date: 20070911
  Receipt Date: 20070905
  Transmission Date: 20080115
  Serious: Yes (Death, Hospitalization)
  Sender: FDA-Public Use
  Company Number: 163-21880-06121119

PATIENT
  Age: 87 Year
  Sex: Female

DRUGS (4)
  1. REVLIMID [Suspect]
     Indication: MULTIPLE MYELOMA
     Dosage: 10 MG, 1 IN 1 D, ORAL
     Route: 048
     Dates: start: 20061129
  2. ALTAPLASE (ALTEPLASE) (INJECTION FOR INFUSION) [Concomitant]
  3. CLOPIDOGREL [Concomitant]
  4. ASPIRIN [Concomitant]

REACTIONS (3)
  - ARTERIAL THROMBOSIS [None]
  - ARTERIOSCLEROSIS [None]
  - HYPERCOAGULATION [None]
